FAERS Safety Report 5451722-5 (Version None)
Quarter: 2007Q3

REPORT INFORMATION
  Report Type: 
  Country: None (occurrence: None)
  Receive Date: 20070913
  Receipt Date: 20070903
  Transmission Date: 20080115
  Serious: Yes (Life-Threatening, Hospitalization)
  Sender: FDA-Public Use
  Company Number: FR-PFIZER INC-2007073702

PATIENT
  Age: 76 Year
  Sex: Male

DRUGS (7)
  1. ADRIBLASTINE [Suspect]
     Indication: LYMPHOMA
     Route: 042
     Dates: start: 20060525, end: 20060531
  2. ENDOXAN [Suspect]
     Indication: LYMPHOMA
     Route: 042
     Dates: start: 20060525, end: 20060531
  3. CORTANCYL [Concomitant]
     Route: 042
     Dates: start: 20060525, end: 20070531
  4. NEUPOGEN [Concomitant]
     Route: 058
     Dates: start: 20060527, end: 20060604
  5. ARANESP [Concomitant]
     Route: 058
  6. PROPRANOLOL HYDROCHLORIDE [Concomitant]
     Route: 048
  7. NEXIUM [Concomitant]
     Route: 048

REACTIONS (2)
  - AGRANULOCYTOSIS [None]
  - APLASIA [None]
